FAERS Safety Report 10028773 (Version 1)
Quarter: 2014Q1

REPORT INFORMATION
  Report Type: Spontaneous
  Country: BG (occurrence: BG)
  Receive Date: 20140321
  Receipt Date: 20140321
  Transmission Date: 20141002
  Serious: Yes (Life-Threatening, Other)
  Sender: FDA-Public Use
  Company Number: BG-MERCK-1403BGR008848

PATIENT
  Sex: Male

DRUGS (3)
  1. VICTRELIS [Suspect]
     Indication: HEPATITIS C
     Dosage: UNK
     Route: 048
  2. REBETOL [Suspect]
     Indication: HEPATITIS C
     Route: 048
  3. PEGINTRON [Suspect]
     Indication: HEPATITIS C
     Route: 058

REACTIONS (1)
  - Pancytopenia [Recovered/Resolved with Sequelae]
